FAERS Safety Report 4491408-7 (Version None)
Quarter: 2004Q4

REPORT INFORMATION
  Report Type: 
  Country: None (occurrence: None)
  Receive Date: 20041101
  Receipt Date: 20041101
  Transmission Date: 20050328
  Serious: Yes (Hospitalization)
  Sender: FDA-Public Use
  Company Number: None

PATIENT
  Sex: Female
  Weight: 95.1 kg

DRUGS (3)
  1. THALIDOMIDE [Suspect]
     Indication: NON-SMALL CELL LUNG CANCER
     Dosage: 200 MG QHS ORAL
     Route: 048
     Dates: start: 20040929, end: 20041013
  2. CARBOPLATIN [Suspect]
     Indication: NON-SMALL CELL LUNG CANCER
     Dosage: 570 MG Q 21 DAYS INTRAVENOU
     Route: 042
  3. IRINOTECAN HCL [Concomitant]

REACTIONS (6)
  - ABDOMINAL PAIN [None]
  - BOWEL SOUNDS ABNORMAL [None]
  - CONSTIPATION [None]
  - NAUSEA [None]
  - TENDERNESS [None]
  - VOMITING [None]
